FAERS Safety Report 16686678 (Version 1)
Quarter: 2019Q3

REPORT INFORMATION
  Report Type: Spontaneous
  Country: US (occurrence: US)
  Receive Date: 20190809
  Receipt Date: 20190809
  Transmission Date: 20191004
  Serious: No
  Sender: FDA-Public Use
  Company Number: US-DRREDDYS-USA/USA/19/0112864

PATIENT
  Age: 47 Year
  Sex: Female
  Weight: 67.5 kg

DRUGS (2)
  1. NICOTINE. [Suspect]
     Active Substance: NICOTINE
     Indication: TOBACCO WITHDRAWAL SYMPTOMS
  2. NICOTINE. [Suspect]
     Active Substance: NICOTINE
     Indication: TOBACCO USER
     Route: 062
     Dates: start: 20190731

REACTIONS (5)
  - Nausea [Recovered/Resolved]
  - Hypersomnia [Not Recovered/Not Resolved]
  - Incorrect dose administered [Unknown]
  - Dizziness [Recovered/Resolved]
  - Mood swings [Recovered/Resolved]

NARRATIVE: CASE EVENT DATE: 20190731
